FAERS Safety Report 5453601-6 (Version None)
Quarter: 2007Q3

REPORT INFORMATION
  Report Type: 
  Country: None (occurrence: None)
  Receive Date: 20070917
  Receipt Date: 20070904
  Transmission Date: 20080115
  Serious: Yes (Hospitalization)
  Sender: FDA-Public Use
  Company Number: PHHO2007AR10189

PATIENT
  Age: 24 Year
  Sex: Female

DRUGS (3)
  1. CYCLOSPORINE [Suspect]
     Indication: RENAL TRANSPLANT
     Dosage: 200 MG, QD
     Route: 048
     Dates: start: 20060823
  2. MYCOPHENOLATE MOFETIL [Concomitant]
     Dosage: UNK, UNK
     Dates: start: 20060823
  3. PREDNISONE [Concomitant]
     Dosage: UNK, UNK
     Dates: start: 20060823

REACTIONS (5)
  - DIARRHOEA [None]
  - PELVIC FLUID COLLECTION [None]
  - PYREXIA [None]
  - URINARY TRACT INFECTION [None]
  - VOMITING [None]
